FAERS Safety Report 7417462-8 (Version None)
Quarter: 2011Q2

REPORT INFORMATION
  Report Type: 
  Country: None (occurrence: None)
  Receive Date: 20110415
  Receipt Date: 20110413
  Transmission Date: 20111010
  Serious: Yes (Hospitalization, Other)
  Sender: FDA-Public Use
  Company Number: JP-PFIZER INC-2011081937

PATIENT
  Age: 33 Year
  Sex: Female

DRUGS (1)
  1. UNASYN [Suspect]
     Dosage: 1.5 G, 3X/DAY
     Route: 042

REACTIONS (2)
  - HAEMOLYTIC ANAEMIA [None]
  - ABORTION SPONTANEOUS [None]
